FAERS Safety Report 10244593 (Version 2)
Quarter: 2014Q3

REPORT INFORMATION
  Report Type: Spontaneous
  Country: US (occurrence: US)
  Receive Date: 20140618
  Receipt Date: 20140918
  Transmission Date: 20150326
  Serious: Yes (Death)
  Sender: FDA-Public Use
  Company Number: US-GLAXOSMITHKLINE-A1077158A

PATIENT
  Age: 84 Year
  Sex: Male
  Weight: 60 kg

DRUGS (1)
  1. ADVAIR HFA [Suspect]
     Active Substance: FLUTICASONE PROPIONATE\SALMETEROL XINAFOATE
     Indication: DYSPNOEA
     Route: 055
     Dates: start: 20140513

REACTIONS (2)
  - Cardiac disorder [Not Recovered/Not Resolved]
  - Myocardial infarction [Fatal]

NARRATIVE: CASE EVENT DATE: 20140820
